FAERS Safety Report 6815169-9 (Version None)
Quarter: 2010Q2

REPORT INFORMATION
  Report Type: 
  Country: None (occurrence: None)
  Receive Date: 20100630
  Receipt Date: 20100630
  Transmission Date: 20101027
  Serious: Yes (Hospitalization)
  Sender: FDA-Public Use
  Company Number: None

PATIENT
  Age: 53 Year
  Sex: Male
  Weight: 74.1 kg

DRUGS (2)
  1. GEMCITABINE HCL [Suspect]
     Indication: BILE DUCT CANCER
     Dosage: 1536 MG DAY 1 X1 IV
     Route: 042
  2. OXALIPLATIN [Suspect]
     Indication: BILE DUCT CANCER
     Dosage: 163 MG DAY 2 X1 IV
     Route: 042

REACTIONS (3)
  - DEHYDRATION [None]
  - NAUSEA [None]
  - VOMITING [None]
